FAERS Safety Report 9055662 (Version 1)
Quarter: 2013Q1

REPORT INFORMATION
  Report Type: Spontaneous
  Country: US (occurrence: US)
  Receive Date: 20130206
  Receipt Date: 20130206
  Transmission Date: 20140127
  Serious: Yes (Hospitalization, Other)
  Sender: FDA-Public Use
  Company Number: US-JNJFOC-20130114699

PATIENT
  Age: 63 None
  Sex: Male
  Weight: 58.97 kg

DRUGS (3)
  1. DURAGESIC [Suspect]
     Indication: OSTEOARTHRITIS
     Dosage: 100+  25 UG/HR
     Route: 062
  2. DURAGESIC [Suspect]
     Indication: ARTHRALGIA
     Dosage: 100+  25 UG/HR
     Route: 062
  3. AN UNKNOWN MEDICATION [Concomitant]
     Route: 065

REACTIONS (3)
  - Cholecystectomy [Recovered/Resolved]
  - Blood glucose increased [Not Recovered/Not Resolved]
  - Dehydration [Not Recovered/Not Resolved]
